FAERS Safety Report 25468730 (Version 1)
Quarter: 2025Q2

REPORT INFORMATION
  Report Type: Spontaneous
  Country: US (occurrence: US)
  Receive Date: 20250623
  Receipt Date: 20250623
  Transmission Date: 20250716
  Serious: No
  Sender: SANOFI AVENTIS
  Company Number: US-SA-2025SA175615

PATIENT
  Age: 65 Year
  Sex: Female

DRUGS (4)
  1. DUPIXENT [Suspect]
     Active Substance: DUPILUMAB
     Indication: Asthma
     Route: 058
     Dates: start: 202504, end: 202504
  2. DUPIXENT [Suspect]
     Active Substance: DUPILUMAB
     Dosage: 300 MG, QOW
     Route: 058
     Dates: start: 2025
  3. FLONASE [Concomitant]
     Active Substance: FLUTICASONE PROPIONATE
  4. AIRSUPRA [BUDESONIDE;SALBUTAMOL] [Concomitant]

REACTIONS (2)
  - Toothache [Unknown]
  - Dental prosthesis placement [Unknown]

NARRATIVE: CASE EVENT DATE: 20250101
